FAERS Safety Report 4694289-1 (Version None)
Quarter: 2005Q2

REPORT INFORMATION
  Report Type: 
  Country: None (occurrence: None)
  Receive Date: 20050620
  Receipt Date: 20050524
  Transmission Date: 20051028
  Serious: Yes (Hospitalization)
  Sender: FDA-Public Use
  Company Number: JP-ABBOTT-05P-087-0301618-00

PATIENT
  Sex: Male

DRUGS (7)
  1. KLARICID [Suspect]
     Indication: ANTIBACTERIAL PROPHYLAXIS
     Route: 048
     Dates: start: 20030807, end: 20030811
  2. CEFCAPENE PIVOXIL HYDROCHLORIDE [Suspect]
     Indication: ANTIBACTERIAL PROPHYLAXIS
     Route: 048
     Dates: start: 20030730, end: 20030806
  3. SULPERAZON [Suspect]
     Indication: ANTIBACTERIAL PROPHYLAXIS
     Route: 050
     Dates: start: 20030731, end: 20030806
  4. TROXIPIDE [Concomitant]
     Indication: GASTRITIS
     Route: 048
     Dates: start: 20030730, end: 20030806
  5. LOXOPROFEN SODIUM [Concomitant]
     Indication: HEADACHE
     Route: 048
     Dates: start: 20030730, end: 20030806
  6. HYDROCORTISONE SODIUM SUCCINATE [Concomitant]
     Indication: OEDEMA
     Route: 050
     Dates: start: 20030731, end: 20030806
  7. L-CARBOCISTEINE [Concomitant]
     Indication: SECRETION DISCHARGE
     Route: 048
     Dates: start: 20030807

REACTIONS (3)
  - CLOSTRIDIUM COLITIS [None]
  - DIARRHOEA [None]
  - HAEMATOCHEZIA [None]
